FAERS Safety Report 4632256-4 (Version None)
Quarter: 2005Q2

REPORT INFORMATION
  Report Type: 
  Country: None (occurrence: None)
  Receive Date: 20050411
  Receipt Date: 20050330
  Transmission Date: 20051028
  Serious: Yes (Hospitalization)
  Sender: FDA-Public Use
  Company Number: GB-BRISTOL-MYERS SQUIBB COMPANY-12915088

PATIENT
  Age: 62 Year
  Sex: Female

DRUGS (1)
  1. IRBESARTAN [Suspect]
     Indication: HYPERTENSION

REACTIONS (3)
  - HEPATOMEGALY [None]
  - HEPATOTOXICITY [None]
  - JAUNDICE CHOLESTATIC [None]
